FAERS Safety Report 6614283-0 (Version None)
Quarter: 2010Q1

REPORT INFORMATION
  Report Type: 
  Country: None (occurrence: None)
  Receive Date: 20100303
  Receipt Date: 20100303
  Transmission Date: 20100710
  Serious: Yes (Death, Hospitalization, Disabling)
  Sender: FDA-Public Use
  Company Number: None

PATIENT
  Age: 92 Year
  Sex: Female
  Weight: 47.6277 kg

DRUGS (1)
  1. AMIODARONE HCL [Suspect]

REACTIONS (3)
  - DYSPNOEA [None]
  - PULMONARY FIBROSIS [None]
  - THERAPEUTIC AGENT TOXICITY [None]
